FAERS Safety Report 8806451 (Version 1)
Quarter: 2012Q4

REPORT INFORMATION
  Report Type: Spontaneous
  Country: US (occurrence: None)
  Receive Date: 20120918
  Receipt Date: 20120918
  Transmission Date: 20130627
  Serious: No
  Sender: FDA-Public Use
  Company Number: None

PATIENT

DRUGS (3)
  1. IC-GREEN [Suspect]
  2. IC-GREEN [Suspect]
     Dosage: Injectale 25mg kit vilas  Six vials (25 mg each)
  3. IC-GREEN [Suspect]
     Dosage: Injectable injection 10 mL each ampules 6amples

REACTIONS (1)
  - Medication error [None]
